FAERS Safety Report 7258767-3 (Version None)
Quarter: 2011Q1

REPORT INFORMATION
  Report Type: 
  Country: None (occurrence: None)
  Receive Date: 20110129
  Receipt Date: 20100503
  Transmission Date: 20110831
  Serious: No
  Sender: FDA-Public Use
  Company Number: US-ABBOTT-10P-163-0642640-00

PATIENT
  Age: 36 Year
  Sex: Female

DRUGS (2)
  1. HUMIRA [Suspect]
     Indication: PSORIASIS
     Dates: start: 20100419
  2. MULTI-VITAMIN [Concomitant]
     Indication: PRODUCT USED FOR UNKNOWN INDICATION
     Route: 048

REACTIONS (7)
  - INJECTION SITE SWELLING [None]
  - PRURITUS [None]
  - INJECTION SITE ERYTHEMA [None]
  - MIDDLE INSOMNIA [None]
  - NASAL CONGESTION [None]
  - FEELING ABNORMAL [None]
  - EYE PAIN [None]
